FAERS Safety Report 7262771-9 (Version None)
Quarter: 2011Q1

REPORT INFORMATION
  Report Type: 
  Country: None (occurrence: None)
  Receive Date: 20110130
  Receipt Date: 20100917
  Transmission Date: 20110831
  Serious: No
  Sender: FDA-Public Use
  Company Number: US-ABBOTT-10P-163-0666756-00

PATIENT
  Sex: Female
  Weight: 48.578 kg

DRUGS (5)
  1. HUMIRA [Suspect]
     Indication: CROHN'S DISEASE
  2. MERCAPTOPURINE [Concomitant]
     Indication: PRODUCT USED FOR UNKNOWN INDICATION
  3. HUMIRA [Suspect]
     Indication: COLITIS ULCERATIVE
     Dates: start: 20090901
  4. LIALDA [Concomitant]
     Indication: COLON CANCER
  5. LIALDA [Concomitant]
     Indication: PROPHYLAXIS

REACTIONS (4)
  - INJECTION SITE URTICARIA [None]
  - INJECTION SITE HAEMORRHAGE [None]
  - DRUG DOSE OMISSION [None]
  - DEVICE MALFUNCTION [None]
